FAERS Safety Report 23986323 (Version 2)
Quarter: 2024Q3

REPORT INFORMATION
  Report Type: Report from Study
  Country: US (occurrence: US)
  Receive Date: 20240618
  Receipt Date: 20240715
  Transmission Date: 20241017
  Serious: Yes (Other)
  Sender: GILEAD
  Company Number: US-GILEAD-2024-0676779

PATIENT
  Sex: Female

DRUGS (4)
  1. AMBRISENTAN [Suspect]
     Active Substance: AMBRISENTAN
     Indication: Pulmonary hypertension
     Dosage: 10 MG, QD
     Route: 065
     Dates: start: 20171205
  2. AMBRISENTAN [Suspect]
     Active Substance: AMBRISENTAN
     Dosage: 10 MG, QD
     Route: 065
     Dates: start: 20230111
  3. TADALAFIL [Concomitant]
     Active Substance: TADALAFIL
  4. TYVASO [Concomitant]
     Active Substance: TREPROSTINIL

REACTIONS (7)
  - Neuropathy peripheral [Unknown]
  - Disability [Unknown]
  - Dysgraphia [Unknown]
  - Illness [Unknown]
  - Panic reaction [Unknown]
  - Anxiety [Unknown]
  - Cardiac disorder [Not Recovered/Not Resolved]
